FAERS Safety Report 9308179 (Version 2)
Quarter: 2013Q2

REPORT INFORMATION
  Report Type: Report from Study
  Country: ES (occurrence: ES)
  Receive Date: 20130524
  Receipt Date: 20130610
  Transmission Date: 20140414
  Serious: Yes (Life-Threatening, Hospitalization)
  Sender: FDA-Public Use
  Company Number: ES-PFIZER INC-2013157084

PATIENT
  Age: 75 Year
  Sex: Male

DRUGS (5)
  1. ALDACTONE [Suspect]
     Indication: RENAL FAILURE CHRONIC
     Dosage: 100 MG, 1X/DAY
     Route: 048
     Dates: start: 200606, end: 20120202
  2. ACOVIL [Interacting]
     Indication: HYPERTENSION
     Dosage: 10 MG, 1X/DAY
     Route: 048
     Dates: start: 200601, end: 20120202
  3. SEGURIL [Interacting]
     Indication: RENAL FAILURE CHRONIC
     Dosage: 40 MG, 1X/DAY
     Route: 048
     Dates: start: 200604, end: 20120202
  4. DIANBEN [Concomitant]
     Indication: DIABETES MELLITUS
     Dosage: 850 MG, 1X/DAY
     Route: 048
     Dates: start: 200606, end: 20120202
  5. ZALDIAR [Concomitant]
     Indication: PAIN
     Dosage: 75 MG, 1X/DAY
     Route: 048
     Dates: start: 20120125, end: 20120202

REACTIONS (3)
  - Drug interaction [Unknown]
  - Uraemic encephalopathy [Recovered/Resolved]
  - Renal failure acute [Recovered/Resolved]
